FAERS Safety Report 14215163 (Version 1)
Quarter: 2017Q4

REPORT INFORMATION
  Report Type: Spontaneous
  Country: US (occurrence: US)
  Receive Date: 20171122
  Receipt Date: 20171122
  Transmission Date: 20180321
  Serious: No
  Sender: FDA-Public Use
  Company Number: US-JNJFOC-20171113408

PATIENT
  Sex: Male
  Weight: 31.75 kg

DRUGS (1)
  1. CONCERTA [Suspect]
     Active Substance: METHYLPHENIDATE HYDROCHLORIDE
     Indication: ATTENTION DEFICIT/HYPERACTIVITY DISORDER
     Route: 048
     Dates: start: 201709, end: 2017

REACTIONS (3)
  - Abnormal behaviour [Unknown]
  - Social avoidant behaviour [Unknown]
  - Mood altered [Unknown]

NARRATIVE: CASE EVENT DATE: 2017
